FAERS Safety Report 5444297-8 (Version None)
Quarter: 2007Q3

REPORT INFORMATION
  Report Type: 
  Country: None (occurrence: None)
  Receive Date: 20070904
  Receipt Date: 20070904
  Transmission Date: 20080115
  Serious: Yes (Other)
  Sender: FDA-Public Use
  Company Number: None

PATIENT
  Sex: Female
  Weight: 83.9154 kg

DRUGS (1)
  1. AUGMENTIN [Suspect]
     Indication: SINUSITIS
     Dosage: 875-125 MG.  2 TIMES/DAY  PO
     Route: 048
     Dates: start: 20070823, end: 20070824

REACTIONS (6)
  - ARTHRALGIA [None]
  - HYPERACUSIS [None]
  - HYPOAESTHESIA [None]
  - INFLAMMATION [None]
  - MIGRAINE [None]
  - PHOTOPHOBIA [None]
